FAERS Safety Report 25161585 (Version 1)
Quarter: 2025Q2

REPORT INFORMATION
  Report Type: Spontaneous
  Country: FR (occurrence: FR)
  Receive Date: 20250404
  Receipt Date: 20250404
  Transmission Date: 20250716
  Serious: Yes (Life-Threatening)
  Sender: FRESENIUS KABI
  Company Number: None

PATIENT
  Age: 58 Year
  Sex: Female
  Weight: 70 kg

DRUGS (6)
  1. ROCURONIUM BROMIDE [Suspect]
     Active Substance: ROCURONIUM BROMIDE
     Indication: Induction and maintenance of anaesthesia
     Route: 042
     Dates: start: 20241115, end: 20241115
  2. LIDOCAINE HYDROCHLORIDE [Concomitant]
     Active Substance: LIDOCAINE HYDROCHLORIDE
     Indication: Induction of anaesthesia
     Route: 042
  3. SUFENTANIL [Concomitant]
     Active Substance: SUFENTANIL
     Indication: Induction of anaesthesia
     Route: 042
  4. KETAMINE [Concomitant]
     Active Substance: KETAMINE
     Indication: Induction of anaesthesia
     Route: 042
  5. PROPOFOL [Concomitant]
     Active Substance: PROPOFOL
     Indication: Induction of anaesthesia
     Route: 042
  6. DEXAMETHASONE [Concomitant]
     Active Substance: DEXAMETHASONE
     Indication: Induction of anaesthesia
     Route: 042

REACTIONS (1)
  - Anaphylactic shock [Recovered/Resolved]

NARRATIVE: CASE EVENT DATE: 20241115
